FAERS Safety Report 14199359 (Version 1)
Quarter: 2017Q4

REPORT INFORMATION
  Report Type: Spontaneous
  Country: US (occurrence: None)
  Receive Date: 20171116
  Receipt Date: 20171116
  Transmission Date: 20180321
  Serious: Yes (Hospitalization)
  Sender: FDA-Public Use
  Company Number: None

PATIENT
  Sex: Female

DRUGS (5)
  1. WARFARIN [Concomitant]
     Active Substance: WARFARIN
  2. HYDROCODONE BITARTRATE AND ACETAMINOPHEN [Concomitant]
     Active Substance: ACETAMINOPHEN\HYDROCODONE BITARTRATE
  3. HYDROXYUREA. [Concomitant]
     Active Substance: HYDROXYUREA
  4. JADENU [Suspect]
     Active Substance: DEFERASIROX
     Indication: SICKLE CELL ANAEMIA WITH CRISIS
     Route: 048
     Dates: start: 20161122
  5. FOLIC ACID. [Concomitant]
     Active Substance: FOLIC ACID

REACTIONS (8)
  - Fatigue [None]
  - Diarrhoea [None]
  - Henoch-Schonlein purpura [None]
  - Skin discolouration [None]
  - Gastrointestinal disorder [None]
  - Arthralgia [None]
  - Insomnia [None]
  - Renal disorder [None]

NARRATIVE: CASE EVENT DATE: 2017
